FAERS Safety Report 5503846-1 (Version None)
Quarter: 2007Q4

REPORT INFORMATION
  Report Type: 
  Country: None (occurrence: None)
  Receive Date: 20071030
  Receipt Date: 20071018
  Transmission Date: 20080405
  Serious: Yes (Other)
  Sender: FDA-Public Use
  Company Number: CHPA2007US11184

PATIENT
  Age: 69 Year
  Sex: Female

DRUGS (1)
  1. TRANSDERM SCOP [Suspect]
     Indication: MOTION SICKNESS
     Dosage: 1.5 MG, ONCE/ SINGLE, TRANSDERMAL
     Route: 062
     Dates: start: 20071013, end: 20071013

REACTIONS (4)
  - ABASIA [None]
  - BALANCE DISORDER [None]
  - DRUG INEFFECTIVE [None]
  - DYSSTASIA [None]
